FAERS Safety Report 14978439 (Version 2)
Quarter: 2021Q1

REPORT INFORMATION
  Report Type: Spontaneous
  Country: IT (occurrence: IT)
  Receive Date: 20180606
  Receipt Date: 20210128
  Transmission Date: 20210419
  Serious: Yes (Hospitalization)
  Sender: FDA-Public Use
  Company Number: PHHY2018IT015139

PATIENT
  Sex: Male

DRUGS (3)
  1. COSENTYX [Suspect]
     Active Substance: SECUKINUMAB
     Indication: PSORIATIC ARTHROPATHY
     Dosage: UNK
     Route: 058
     Dates: start: 20180418
  2. MEDROL [Concomitant]
     Active Substance: METHYLPREDNISOLONE
     Indication: PRODUCT USED FOR UNKNOWN INDICATION
     Dosage: 8 MG, UNKNOWN (TRYING TO GRADUALLY REDUCE, ALTERNATING 1/2 TO 1/4 AS LONG AS THE ARTICULAR MANIFESTA
     Route: 065
  3. COSENTYX [Suspect]
     Active Substance: SECUKINUMAB
     Dosage: UNK (THREE ADMINISTRATIONS)
     Route: 058

REACTIONS (8)
  - Guillain-Barre syndrome [Not Recovered/Not Resolved]
  - Polyneuropathy [Unknown]
  - Asthenia [Unknown]
  - Chest pain [Unknown]
  - Gait disturbance [Unknown]
  - Paraesthesia [Unknown]
  - Fall [Unknown]
  - Dizziness [Unknown]
